FAERS Safety Report 6974220-6 (Version None)
Quarter: 2010Q3

REPORT INFORMATION
  Report Type: 
  Country: None (occurrence: None)
  Receive Date: 20100909
  Receipt Date: 20100831
  Transmission Date: 20110219
  Serious: No
  Sender: FDA-Public Use
  Company Number: US-US-EMD SERONO, INC.-232869J10USA

PATIENT
  Sex: Male

DRUGS (5)
  1. REBIF [Suspect]
     Indication: MULTIPLE SCLEROSIS
     Route: 058
     Dates: start: 20090819
  2. PROVIGIL [Concomitant]
     Indication: ASTHENIA
     Route: 065
     Dates: end: 20100101
  3. PROVIGIL [Concomitant]
     Indication: FATIGUE
     Dates: start: 20100101
  4. BACLOFEN [Concomitant]
     Route: 065
  5. REQUIP [Concomitant]
     Route: 065

REACTIONS (7)
  - ATRIAL FLUTTER [None]
  - CONTUSION [None]
  - FATIGUE [None]
  - OEDEMA PERIPHERAL [None]
  - PURPURA [None]
  - SKIN DISCOLOURATION [None]
  - VARICOSE VEIN [None]
